FAERS Safety Report 7806707-8 (Version None)
Quarter: 2011Q4

REPORT INFORMATION
  Report Type: 
  Country: None (occurrence: None)
  Receive Date: 20111011
  Receipt Date: 20110930
  Transmission Date: 20120403
  Serious: Yes (Other)
  Sender: FDA-Public Use
  Company Number: US-JNJFOC-20110902285

PATIENT
  Sex: Male
  Weight: 117.03 kg

DRUGS (5)
  1. REMICADE [Suspect]
     Indication: CROHN'S DISEASE
     Route: 042
  2. REMICADE [Suspect]
     Route: 042
     Dates: start: 20110712
  3. LOPID [Concomitant]
     Indication: LIPIDS INCREASED
     Route: 065
  4. LISINOPRIL [Concomitant]
     Indication: HYPERTENSION
     Route: 065
  5. QUESTRAN [Concomitant]
     Indication: DIARRHOEA
     Route: 065

REACTIONS (1)
  - PNEUMONIA LEGIONELLA [None]
